FAERS Safety Report 5302931-7 (Version None)
Quarter: 2007Q2

REPORT INFORMATION
  Report Type: 
  Country: None (occurrence: None)
  Receive Date: 20070417
  Receipt Date: 20070417
  Transmission Date: 20071010
  Serious: Yes (Life-Threatening)
  Sender: FDA-Public Use
  Company Number: None

PATIENT
  Age: 20 Year
  Sex: Female
  Weight: 58.9676 kg

DRUGS (2)
  1. TAMIFLU [Suspect]
     Indication: APHONIA
     Dosage: TWICE DAILY PO
     Route: 048
     Dates: start: 20070410, end: 20070414
  2. TAMIFLU [Suspect]
     Indication: INFLUENZA LIKE ILLNESS
     Dosage: TWICE DAILY PO
     Route: 048
     Dates: start: 20070410, end: 20070414

REACTIONS (8)
  - ABNORMAL BEHAVIOUR [None]
  - CONFUSIONAL STATE [None]
  - DELIRIUM [None]
  - HALLUCINATION [None]
  - INCOHERENT [None]
  - NIGHTMARE [None]
  - PARANOIA [None]
  - PSYCHOMOTOR HYPERACTIVITY [None]
